FAERS Safety Report 19482044 (Version 1)
Quarter: 2021Q2

REPORT INFORMATION
  Report Type: Spontaneous
  Country: US (occurrence: US)
  Receive Date: 20210630
  Receipt Date: 20210630
  Transmission Date: 20210717
  Serious: Yes (Other)
  Sender: FDA-Public Use
  Company Number: None

PATIENT
  Age: 30 Year
  Sex: Female
  Weight: 113.3 kg

DRUGS (4)
  1. SAPROPTERIN DIHYDROCHLORIDE [Suspect]
     Active Substance: SAPROPTERIN DIHYDROCHLORIDE
     Indication: PRODUCT USED FOR UNKNOWN INDICATION
     Route: 048
     Dates: start: 20210627
  2. SINEMET [Concomitant]
     Active Substance: CARBIDOPA\LEVODOPA
  3. COMTAN [Concomitant]
     Active Substance: ENTACAPONE
  4. VALIUM [Concomitant]
     Active Substance: DIAZEPAM

REACTIONS (7)
  - Insurance issue [None]
  - Product substitution issue [None]
  - Restlessness [None]
  - Dysarthria [None]
  - Dyskinesia [None]
  - Trismus [None]
  - Headache [None]

NARRATIVE: CASE EVENT DATE: 20210628
